FAERS Safety Report 12213046 (Version 4)
Quarter: 2016Q2

REPORT INFORMATION
  Report Type: Spontaneous
  Country: US (occurrence: US)
  Receive Date: 20160328
  Receipt Date: 20160616
  Transmission Date: 20160815
  Serious: Yes (Hospitalization)
  Sender: FDA-Public Use
  Company Number: US-ROCHE-1731182

PATIENT
  Sex: Female
  Weight: 68.1 kg

DRUGS (3)
  1. CELLCEPT [Suspect]
     Active Substance: MYCOPHENOLATE MOFETIL\MYCOPHENOLATE MOFETIL HYDROCHLORIDE
     Indication: POLYMYOSITIS
     Dosage: TWICE A DAY
     Route: 048
     Dates: start: 201002
  2. PREDNISONE. [Concomitant]
     Active Substance: PREDNISONE
     Route: 048
  3. PREDNISONE. [Concomitant]
     Active Substance: PREDNISONE
     Indication: POLYMYOSITIS
     Dosage: SPLITS BETWEEN MORNING AND AFTERNOON
     Route: 048

REACTIONS (3)
  - Nasopharyngitis [Recovered/Resolved]
  - Hip arthroplasty [Unknown]
  - Infection [Recovered/Resolved]
